FAERS Safety Report 20755130 (Version 1)
Quarter: 2022Q2

REPORT INFORMATION
  Report Type: Spontaneous
  Country: JP (occurrence: JP)
  Receive Date: 20220427
  Receipt Date: 20220427
  Transmission Date: 20220721
  Serious: Yes (Death)
  Sender: FDA-Public Use
  Company Number: JP-LUPIN PHARMACEUTICALS INC.-2022-06129

PATIENT
  Age: 53 Year
  Sex: Female

DRUGS (10)
  1. SULFAMETHOXAZOLE AND TRIMETHOPRIM [Suspect]
     Active Substance: SULFAMETHOXAZOLE\TRIMETHOPRIM
     Indication: Disseminated toxoplasmosis
     Dosage: UNK
     Route: 065
  2. SULFAMETHOXAZOLE AND TRIMETHOPRIM [Suspect]
     Active Substance: SULFAMETHOXAZOLE\TRIMETHOPRIM
     Indication: Toxoplasmosis
     Dosage: UNK
     Route: 065
     Dates: start: 2017
  3. SULFAMETHOXAZOLE AND TRIMETHOPRIM [Suspect]
     Active Substance: SULFAMETHOXAZOLE\TRIMETHOPRIM
     Indication: Infection reactivation
  4. SULFAMETHOXAZOLE AND TRIMETHOPRIM [Suspect]
     Active Substance: SULFAMETHOXAZOLE\TRIMETHOPRIM
     Indication: Antifungal prophylaxis
  5. DAUNORUBICIN [Concomitant]
     Active Substance: DAUNORUBICIN
     Indication: Chloroma
     Dosage: UNK INDUCTION THERAPY
     Route: 065
  6. DAUNORUBICIN [Concomitant]
     Active Substance: DAUNORUBICIN
     Dosage: UNK RE-INDUCTION THERAPY
     Route: 065
     Dates: start: 2017
  7. CYTARABINE [Concomitant]
     Active Substance: CYTARABINE
     Indication: Chloroma
     Dosage: UNK INDUCTION THERAPY
     Route: 065
  8. CYTARABINE [Concomitant]
     Active Substance: CYTARABINE
     Dosage: UNK RE-INDUCTION THERAPY
     Route: 065
     Dates: start: 2017
  9. MELPHALAN [Concomitant]
     Active Substance: MELPHALAN
     Indication: Chloroma
     Dosage: UNK
     Route: 065
     Dates: start: 201610
  10. BUSULFAN [Concomitant]
     Active Substance: BUSULFAN
     Indication: Chloroma
     Dosage: UNK
     Route: 065
     Dates: start: 201610

REACTIONS (2)
  - Drug ineffective for unapproved indication [Unknown]
  - Off label use [Unknown]

NARRATIVE: CASE EVENT DATE: 20170101
